FAERS Safety Report 17030211 (Version 2)
Quarter: 2021Q1

REPORT INFORMATION
  Report Type: Spontaneous
  Country: US (occurrence: US)
  Receive Date: 20191114
  Receipt Date: 20210316
  Transmission Date: 20210419
  Serious: No
  Sender: FDA-Public Use
  Company Number: US-MYLANLABS-2019M1106278

PATIENT
  Sex: Female

DRUGS (1)
  1. ESTRADIOL TRANSDERMAL SYSTEM [Suspect]
     Active Substance: ESTRADIOL
     Indication: MENOPAUSE
     Dosage: UNK UNK, QD
     Route: 062

REACTIONS (5)
  - Hot flush [Unknown]
  - Muscle spasms [Unknown]
  - Application site erythema [Unknown]
  - Headache [Unknown]
  - Skin erosion [Unknown]
